FAERS Safety Report 5363265-8 (Version None)
Quarter: 2007Q2

REPORT INFORMATION
  Report Type: 
  Country: None (occurrence: None)
  Receive Date: 20070618
  Receipt Date: 20070618
  Transmission Date: 20071010
  Serious: No
  Sender: FDA-Public Use
  Company Number: None

PATIENT
  Age: 54 Year
  Sex: Female

DRUGS (10)
  1. CHELEX (SUCCIMER) [Suspect]
     Dates: start: 20050223, end: 20050407
  2. WORMWOOD [Suspect]
     Dates: start: 20050303, end: 20050407
  3. CATS CLAW [Suspect]
     Dates: start: 20050303, end: 20050407
  4. FISH LIVER OIL [Concomitant]
  5. GLUCOSAMINE/CHONDROITIN [Concomitant]
  6. ADRENAL GLAND EXTRACT [Concomitant]
  7. OMEGA 3 FATTY ACIDS [Concomitant]
  8. VITAMIN E [Concomitant]
  9. M.V.I. [Concomitant]
  10. MAGNESIUM SULFATE [Concomitant]

REACTIONS (14)
  - ABDOMINAL DISCOMFORT [None]
  - ABDOMINAL PAIN UPPER [None]
  - ALANINE AMINOTRANSFERASE INCREASED [None]
  - ANTINUCLEAR ANTIBODY POSITIVE [None]
  - ASPARTATE AMINOTRANSFERASE INCREASED [None]
  - BLOOD ALKALINE PHOSPHATASE INCREASED [None]
  - CHROMATURIA [None]
  - INFECTION [None]
  - LIVER INJURY [None]
  - NAUSEA [None]
  - OCULAR ICTERUS [None]
  - PRURITUS [None]
  - PYREXIA [None]
  - VOMITING [None]
